FAERS Safety Report 8397787-2 (Version None)
Quarter: 2012Q2

REPORT INFORMATION
  Report Type: 
  Country: None (occurrence: None)
  Receive Date: 20120531
  Receipt Date: 20120522
  Transmission Date: 20120825
  Serious: Yes (Other)
  Sender: FDA-Public Use
  Company Number: CA-JNJFOC-20110904798

PATIENT
  Sex: Female
  Weight: 71.6 kg

DRUGS (2)
  1. REMICADE [Suspect]
     Indication: CROHN'S DISEASE
     Dosage: 36TH INFUSION
     Route: 042
     Dates: start: 20110908
  2. REMICADE [Suspect]
     Dosage: PATIENT HAD 36TH INFUSION ON THE DAY OF REPORTING
     Route: 042
     Dates: start: 20040628

REACTIONS (1)
  - MATERNAL EXPOSURE DURING PREGNANCY [None]
